FAERS Safety Report 20807485 (Version 2)
Quarter: 2022Q2

REPORT INFORMATION
  Report Type: Spontaneous
  Country: GB (occurrence: GB)
  Receive Date: 20220510
  Receipt Date: 20220609
  Transmission Date: 20220721
  Serious: Yes (Other)
  Sender: FDA-Public Use
  Company Number: GB-ABBVIE-22K-167-4383077-00

PATIENT
  Age: 82 Year
  Sex: Male
  Weight: 83.3 kg

DRUGS (2)
  1. CARBIDOPA\LEVODOPA [Suspect]
     Active Substance: CARBIDOPA\LEVODOPA
     Indication: Parkinson^s disease
     Dosage: DAY INFUSION
     Route: 050
     Dates: start: 20180903, end: 2021
  2. CARBIDOPA\LEVODOPA [Suspect]
     Active Substance: CARBIDOPA\LEVODOPA
     Dosage: DAY INFUSION
     Route: 050
     Dates: start: 2021, end: 20211216

REACTIONS (4)
  - Embedded device [Recovered/Resolved]
  - Embedded device [Not Recovered/Not Resolved]
  - Abdominal pain [Recovered/Resolved]
  - Stoma site extravasation [Recovered/Resolved]

NARRATIVE: CASE EVENT DATE: 20210821
